FAERS Safety Report 9768483 (Version 2)
Quarter: 2015Q2

REPORT INFORMATION
  Report Type: Spontaneous
  Country: TR (occurrence: TR)
  Receive Date: 20131217
  Receipt Date: 20150513
  Transmission Date: 20150821
  Serious: Yes (Hospitalization)
  Sender: FDA-Public Use
  Company Number: PHHY2013TR144995

PATIENT
  Age: 82 Year
  Sex: Female

DRUGS (4)
  1. ARTEMISININ AND DERIVATIVES, COMBINATIONS [Interacting]
     Active Substance: DIETARY SUPPLEMENT
     Indication: OROPHARYNGEAL PAIN
     Route: 065
  2. WARFARIN [Suspect]
     Active Substance: WARFARIN
     Indication: ATRIAL FIBRILLATION
     Dosage: 2.5 MG, QD
     Route: 065
  3. NEBIVOLOL [Concomitant]
     Active Substance: NEBIVOLOL
     Indication: ATRIAL FIBRILLATION
     Route: 065
  4. VALSARTAN. [Concomitant]
     Active Substance: VALSARTAN
     Indication: ATRIAL FIBRILLATION
     Route: 065

REACTIONS (8)
  - Heart rate increased [None]
  - Abdominal discomfort [Recovered/Resolved]
  - Melaena [Recovered/Resolved]
  - International normalised ratio increased [Recovered/Resolved]
  - Abdominal pain [Unknown]
  - Faeces discoloured [Unknown]
  - Gastrointestinal haemorrhage [Recovered/Resolved]
  - Drug interaction [Unknown]
